FAERS Safety Report 10017985 (Version 1)
Quarter: 2014Q1

REPORT INFORMATION
  Report Type: Spontaneous
  Country: US (occurrence: US)
  Receive Date: 20140318
  Receipt Date: 20140318
  Transmission Date: 20141002
  Serious: Yes (Other)
  Sender: FDA-Public Use
  Company Number: US-BAYER-2014-038714

PATIENT
  Age: 25 Year
  Sex: Female

DRUGS (2)
  1. MIRENA [Suspect]
     Indication: CONTRACEPTION
     Dosage: 20 MCG/24HR, CONT
     Route: 015
     Dates: start: 200812, end: 20140220
  2. MIRENA [Suspect]
     Indication: CONTRACEPTION
     Dosage: 20 MCG/24HR, CONT
     Route: 015
     Dates: start: 20140220

REACTIONS (6)
  - Genital haemorrhage [Not Recovered/Not Resolved]
  - Vaginal discharge [None]
  - Procedural pain [Not Recovered/Not Resolved]
  - Post procedural haemorrhage [None]
  - Procedural pain [None]
  - Device misuse [None]
